FAERS Safety Report 7279005-1 (Version None)
Quarter: 2011Q1

REPORT INFORMATION
  Report Type: 
  Country: None (occurrence: None)
  Receive Date: 20110207
  Receipt Date: 20110126
  Transmission Date: 20110831
  Serious: Yes (Other)
  Sender: FDA-Public Use
  Company Number: PHHY2011US06970

PATIENT
  Sex: Female

DRUGS (1)
  1. RECLAST [Suspect]
     Indication: OSTEOPENIA
     Dosage: 5 MG
     Route: 042
     Dates: start: 20110117

REACTIONS (6)
  - ABDOMINAL MASS [None]
  - EYE PAIN [None]
  - DELUSION [None]
  - NAUSEA [None]
  - PAIN [None]
  - PAIN OF SKIN [None]
